FAERS Safety Report 6781826-6 (Version None)
Quarter: 2010Q2

REPORT INFORMATION
  Report Type: 
  Country: None (occurrence: None)
  Receive Date: 20100618
  Receipt Date: 20100618
  Transmission Date: 20101027
  Serious: Yes (Hospitalization)
  Sender: FDA-Public Use
  Company Number: None

PATIENT
  Sex: Female
  Weight: 44.4525 kg

DRUGS (1)
  1. AZITHROMYCIN [Suspect]
     Dosage: 500 MG STAT PO, 1 DOSE
     Route: 048
     Dates: start: 20100427, end: 20100427

REACTIONS (4)
  - CYANOSIS [None]
  - DROOLING [None]
  - TACHYCARDIA [None]
  - UNEVALUABLE EVENT [None]
